FAERS Safety Report 4899049-4 (Version None)
Quarter: 2006Q1

REPORT INFORMATION
  Report Type: 
  Country: None (occurrence: None)
  Receive Date: 20060202
  Receipt Date: 20060126
  Transmission Date: 20060701
  Serious: Yes (Hospitalization)
  Sender: FDA-Public Use
  Company Number: JP-JNJFOC-20060105071

PATIENT
  Age: 76 Year
  Sex: Female

DRUGS (17)
  1. TAVANIC [Suspect]
     Indication: BRONCHOPNEUMONIA
     Route: 048
     Dates: start: 20051104, end: 20051111
  2. MARCUMAR [Interacting]
     Indication: DRUG USE FOR UNKNOWN INDICATION
  3. COVERSUM [Concomitant]
  4. SORTIS 10 [Concomitant]
     Route: 048
  5. NITRATPFLASTER [Concomitant]
  6. AQUAPHOR [Concomitant]
     Route: 048
  7. AQUAPHOR [Concomitant]
     Route: 048
  8. AQUAPHOR [Concomitant]
     Route: 048
  9. AQUAPHOR [Concomitant]
     Route: 048
  10. NEXIUM [Concomitant]
     Indication: DIAPHRAGM MUSCLE WEAKNESS
     Route: 048
  11. FERRO SANOL [Concomitant]
  12. FERRO SANOL [Concomitant]
  13. FERRO SANOL [Concomitant]
  14. FERRO SANOL [Concomitant]
  15. SPIRONOLACTONE [Concomitant]
  16. NOVALGIN [Concomitant]
     Indication: PAIN
     Route: 048
     Dates: start: 20051104, end: 20051231
  17. TILIDIN [Concomitant]
     Indication: PAIN
     Route: 048
     Dates: start: 20051104, end: 20051231

REACTIONS (2)
  - DRUG INTERACTION [None]
  - PROTHROMBIN TIME PROLONGED [None]
